FAERS Safety Report 4363874-9 (Version None)
Quarter: 2004Q2

REPORT INFORMATION
  Report Type: 
  Country: None (occurrence: None)
  Receive Date: 20040519
  Receipt Date: 20040505
  Transmission Date: 20050107
  Serious: Yes (Hospitalization)
  Sender: FDA-Public Use
  Company Number: BE-JNJFOC-20040501186

PATIENT
  Age: 38 Year
  Sex: Female
  Weight: 81 kg

DRUGS (6)
  1. RISPERDAL [Suspect]
     Indication: SCHIZOPHRENIA
     Dosage: HIGHER DOSE; LOWER DOSE
     Dates: start: 20040206, end: 20040220
  2. RISPERDAL [Suspect]
     Indication: SCHIZOPHRENIA
     Dosage: HIGHER DOSE; LOWER DOSE
     Dates: start: 20040221
  3. ZYPREXA [Concomitant]
  4. CITALOPRAM [Concomitant]
  5. DEPO-PROVERA [Concomitant]
  6. LORAMET (LORMETAZEPAM) [Concomitant]

REACTIONS (2)
  - PSYCHIATRIC SYMPTOM [None]
  - REFUSAL OF TREATMENT BY PATIENT [None]
